FAERS Safety Report 9521352 (Version 1)
Quarter: 2013Q3

REPORT INFORMATION
  Report Type: Spontaneous
  Country: US (occurrence: None)
  Receive Date: 20130911
  Receipt Date: 20130911
  Transmission Date: 20140515
  Serious: No
  Sender: FDA-Public Use
  Company Number: AEUSA201300042

PATIENT
  Age: 39 Year
  Sex: Female

DRUGS (3)
  1. GAMMAKED [Suspect]
     Indication: MULTIPLE SCLEROSIS
     Route: 042
     Dates: start: 20121210, end: 20121211
  2. WELLBUTRIN [Concomitant]
  3. ADDERALL [Concomitant]

REACTIONS (1)
  - Hypersensitivity [None]
